FAERS Safety Report 8382561-3 (Version None)
Quarter: 2012Q2

REPORT INFORMATION
  Report Type: 
  Country: None (occurrence: None)
  Receive Date: 20120524
  Receipt Date: 20120518
  Transmission Date: 20120825
  Serious: Yes (Other)
  Sender: FDA-Public Use
  Company Number: US-JNJFOC-20120401258

PATIENT
  Sex: Female

DRUGS (1)
  1. XARELTO [Suspect]
     Indication: ATRIAL FIBRILLATION
     Route: 048

REACTIONS (6)
  - RHEUMATOID FACTOR POSITIVE [None]
  - VASCULITIS [None]
  - COMPLEMENT FACTOR C3 DECREASED [None]
  - NEUROPATHY PERIPHERAL [None]
  - PURPURA [None]
  - CONTUSION [None]
